FAERS Safety Report 4874968-3 (Version None)
Quarter: 2006Q1

REPORT INFORMATION
  Report Type: 
  Country: None (occurrence: None)
  Receive Date: 20060104
  Receipt Date: 20051219
  Transmission Date: 20060701
  Serious: Yes (Other)
  Sender: FDA-Public Use
  Company Number: 2005168244

PATIENT
  Age: 67 Year
  Sex: Female
  Weight: 71 kg

DRUGS (2)
  1. LYRICA [Suspect]
     Indication: NEUROPATHY PERIPHERAL
     Dosage: 150 MG (1 D), ORAL
     Route: 048
     Dates: start: 20051119, end: 20051202
  2. DICLONEFAC (DICLOFENAC SODIUM) [Concomitant]

REACTIONS (3)
  - HYPERTENSION [None]
  - HYPOTONIA [None]
  - SINUS TACHYCARDIA [None]
